FAERS Safety Report 7360404-4 (Version None)
Quarter: 2011Q1

REPORT INFORMATION
  Report Type: 
  Country: None (occurrence: None)
  Receive Date: 20110318
  Receipt Date: 20100729
  Transmission Date: 20110831
  Serious: Yes (Other)
  Sender: FDA-Public Use
  Company Number: US-BAYER-201023617NA

PATIENT
  Sex: Female
  Weight: 86.168 kg

DRUGS (9)
  1. UNCODEABLE ^UNCLASSIFIABLE^ [Concomitant]
  2. OCELLA [Suspect]
     Indication: ORAL CONTRACEPTION
     Dosage: UNK UNK, UNK
     Route: 048
     Dates: start: 20080301, end: 20090801
  3. OMEPRAZOLE [Concomitant]
  4. TOPAMAX [Concomitant]
     Indication: MIGRAINE
     Dosage: UNK
     Dates: start: 20081101
  5. SUMATRIPTAN [Concomitant]
     Indication: MIGRAINE
  6. LISINOPRIL [Concomitant]
  7. HYDROCHLOROTHIAZIDE [Concomitant]
  8. MELOXICAM [Concomitant]
     Indication: BACK DISORDER
     Dosage: UNK
     Dates: start: 20071201, end: 20091201
  9. YASMIN [Suspect]
     Indication: ORAL CONTRACEPTION
     Dosage: UNK UNK, UNK
     Route: 048
     Dates: start: 20080301, end: 20090801

REACTIONS (3)
  - CHOLELITHIASIS [None]
  - ABDOMINAL PAIN [None]
  - CHEST PAIN [None]
